FAERS Safety Report 5503188-4 (Version None)
Quarter: 2007Q4

REPORT INFORMATION
  Report Type: 
  Country: None (occurrence: None)
  Receive Date: 20071031
  Receipt Date: 20071022
  Transmission Date: 20080405
  Serious: Yes (Other)
  Sender: FDA-Public Use
  Company Number: GB-AMGEN-US249717

PATIENT
  Age: 14 Year
  Sex: Female

DRUGS (3)
  1. ENBREL [Suspect]
     Indication: DRUG USE FOR UNKNOWN INDICATION
     Dosage: 25MG, FREQUENCY UNKNOWN
     Route: 058
     Dates: start: 20050101
  2. HYDROXYCHLOROQUINE SULFATE [Concomitant]
     Dosage: 200MG, FREQUENCY UNKNOWN
     Route: 048
     Dates: start: 20060301
  3. DICLOFENAC SODIUM [Concomitant]
     Dosage: 75MG, FREQUENCY UNKNOWN
     Route: 048
     Dates: start: 20051201

REACTIONS (1)
  - DEPRESSED MOOD [None]
